FAERS Safety Report 14558392 (Version 1)
Quarter: 2018Q1

REPORT INFORMATION
  Report Type: Spontaneous
  Country: US (occurrence: US)
  Receive Date: 20180221
  Receipt Date: 20180221
  Transmission Date: 20180509
  Serious: No
  Sender: FDA-Public Use
  Company Number: US-PERRIGO-17US026072

PATIENT
  Sex: Female

DRUGS (1)
  1. LOPERAMIDE HYDROCHLORIDE. [Suspect]
     Active Substance: LOPERAMIDE HYDROCHLORIDE
     Indication: COLITIS MICROSCOPIC
     Dosage: 2 MG AFTER 4TH STOOL, PRN
     Route: 048
     Dates: start: 201701

REACTIONS (3)
  - Off label use [Unknown]
  - Haematochezia [Unknown]
  - Insomnia [Unknown]

NARRATIVE: CASE EVENT DATE: 2017
